FAERS Safety Report 4491254-4 (Version None)
Quarter: 2004Q4

REPORT INFORMATION
  Report Type: 
  Country: None (occurrence: None)
  Receive Date: 20041027
  Receipt Date: 20041018
  Transmission Date: 20050328
  Serious: Yes (Death)
  Sender: FDA-Public Use
  Company Number: 2004240020PH

PATIENT

DRUGS (1)
  1. ZYVOX [Suspect]

REACTIONS (1)
  - SEPTIC SHOCK [None]
